FAERS Safety Report 13072872 (Version 4)
Quarter: 2018Q4

REPORT INFORMATION
  Report Type: Spontaneous
  Country: US (occurrence: US)
  Receive Date: 20161229
  Receipt Date: 20181005
  Transmission Date: 20190204
  Serious: Yes (Other)
  Sender: FDA-Public Use
  Company Number: US-SA-2016SA211947

PATIENT
  Age: 62 Year
  Sex: Female
  Weight: 62.59 kg

DRUGS (8)
  1. LETROZOLE. [Concomitant]
     Active Substance: LETROZOLE
     Dosage: 2.5 MG,QD
     Route: 048
     Dates: start: 20141028
  2. TAXOTERE [Suspect]
     Active Substance: DOCETAXEL
     Dosage: 129 MG,Q3W
     Route: 042
     Dates: start: 20140609, end: 20140609
  3. PARAPLATIN [Concomitant]
     Active Substance: CARBOPLATIN
     Dosage: UNK UNK,QCY
     Route: 065
  4. TAXOTERE [Suspect]
     Active Substance: DOCETAXEL
     Indication: BREAST CANCER
     Dosage: 129 MG,Q3W
     Route: 042
     Dates: start: 20140224, end: 20140224
  5. ARIMIDEX [Concomitant]
     Active Substance: ANASTROZOLE
     Dosage: UNK UNK,UNK
     Route: 065
     Dates: start: 20141028
  6. HERCEPTIN [Concomitant]
     Active Substance: TRASTUZUMAB
     Dosage: UNK UNK,QCY
     Route: 065
  7. DESMOPRESSIN ACETATE. [Concomitant]
     Active Substance: DESMOPRESSIN ACETATE
     Dosage: UNK UNK,PRN
     Route: 065
     Dates: start: 2010
  8. PERJETA [Concomitant]
     Active Substance: PERTUZUMAB
     Dosage: UNK UNK,QCY
     Route: 065

REACTIONS (5)
  - Emotional distress [Unknown]
  - Psychological trauma [Unknown]
  - Anxiety [Unknown]
  - Alopecia [Recovering/Resolving]
  - Pain [Unknown]

NARRATIVE: CASE EVENT DATE: 20141209
